FAERS Safety Report 19124562 (Version 1)
Quarter: 2021Q2

REPORT INFORMATION
  Report Type: Spontaneous
  Country: US (occurrence: US)
  Receive Date: 20210413
  Receipt Date: 20210413
  Transmission Date: 20210717
  Serious: No
  Sender: FDA-Public Use
  Company Number: US-AMGEN-USASP2021054315

PATIENT
  Age: 58 Year
  Sex: Female

DRUGS (8)
  1. METFORMIN [Concomitant]
     Active Substance: METFORMIN HYDROCHLORIDE
  2. VICTOZA [Concomitant]
     Active Substance: LIRAGLUTIDE
  3. TOUJEO [Concomitant]
     Active Substance: INSULIN GLARGINE
  4. INVOKANA [Concomitant]
     Active Substance: CANAGLIFLOZIN
  5. OTEZLA [Suspect]
     Active Substance: APREMILAST
     Indication: PSORIASIS
     Dosage: 30 MILLIGRAM, BID
     Route: 048
     Dates: start: 20200125
  6. ROSUVASTATIN. [Concomitant]
     Active Substance: ROSUVASTATIN
  7. NOVOLOG [Concomitant]
     Active Substance: INSULIN ASPART
  8. COVID?19 VACCINE NOS. [Concomitant]
     Active Substance: COVID-19 VACCINE NOS
     Indication: COVID-19

REACTIONS (2)
  - COVID-19 [Not Recovered/Not Resolved]
  - Illness [Recovered/Resolved]

NARRATIVE: CASE EVENT DATE: 202012
